FAERS Safety Report 20796706 (Version 3)
Quarter: 2022Q3

REPORT INFORMATION
  Report Type: Spontaneous
  Country: US (occurrence: US)
  Receive Date: 20220506
  Receipt Date: 20220627
  Transmission Date: 20221026
  Serious: Yes (Other)
  Sender: FDA-Public Use
  Company Number: US-NOVARTISPH-NVSC2022US102248

PATIENT
  Age: 61 Year
  Sex: Female

DRUGS (4)
  1. RECLAST [Suspect]
     Active Substance: ZOLEDRONIC ACID
     Indication: Osteoporosis
     Dosage: UNK
     Route: 065
     Dates: start: 202201
  2. LEVOKETOCONAZOLE [Suspect]
     Active Substance: LEVOKETOCONAZOLE
     Indication: Cushing^s syndrome
     Dosage: 1 DOSAGE FORM, BID (150 MG)
     Route: 048
     Dates: start: 20220322
  3. LEVOKETOCONAZOLE [Suspect]
     Active Substance: LEVOKETOCONAZOLE
     Dosage: UNK
     Route: 048
     Dates: start: 202204, end: 202204
  4. LEVOKETOCONAZOLE [Suspect]
     Active Substance: LEVOKETOCONAZOLE
     Dosage: 150 MG, BID
     Route: 048
     Dates: start: 20220422

REACTIONS (14)
  - Spondylitis [Recovered/Resolved]
  - Spinal stenosis [Recovered/Resolved]
  - Intervertebral disc compression [Recovering/Resolving]
  - Abdominal discomfort [Recovering/Resolving]
  - Fluid retention [Recovering/Resolving]
  - Heart rate increased [Recovering/Resolving]
  - Headache [Unknown]
  - Arthralgia [Recovered/Resolved]
  - Vomiting [Recovering/Resolving]
  - Nausea [Recovering/Resolving]
  - Abdominal pain upper [Recovering/Resolving]
  - Arthritis [Recovered/Resolved]
  - Pain [Recovered/Resolved]
  - Sinusitis [Recovering/Resolving]

NARRATIVE: CASE EVENT DATE: 20220301
